FAERS Safety Report 10972704 (Version 2)
Quarter: 2015Q2

REPORT INFORMATION
  Report Type: Other
  Country: DE (occurrence: DE)
  Receive Date: 20150331
  Receipt Date: 20150428
  Transmission Date: 20150821
  Serious: Yes (Death, Congenital Anomaly, Other)
  Sender: FDA-Public Use
  Company Number: DE-MYLANLABS-2015M1009330

PATIENT

DRUGS (7)
  1. DIAZEPAM. [Concomitant]
     Active Substance: DIAZEPAM
     Indication: DEPRESSION
     Dosage: UNK 10 [MG/D ] (20.5. - GESTATIONAL WEEK)
     Route: 064
     Dates: start: 20140619
  2. PRESINOL [Concomitant]
     Active Substance: METHYLDOPA
     Indication: HYPERTENSION
     Dosage: UNK (2000 [MG/D (4 X 500 MG/D)
     Route: 064
     Dates: start: 20140125, end: 20140709
  3. LORAZEPAM. [Concomitant]
     Active Substance: LORAZEPAM
     Indication: DEPRESSION
     Dosage: UNK [1.25 [MG/D ]
     Route: 064
  4. SEROQUEL [Suspect]
     Active Substance: QUETIAPINE FUMARATE
     Indication: DEPRESSION
     Dosage: UNK  100 [MG/D ]
     Route: 064
     Dates: start: 20140125, end: 20140716
  5. SERTRALINE [Suspect]
     Active Substance: SERTRALINE HYDROCHLORIDE
     Indication: DEPRESSION
     Dosage: UNK 100 [MG/D ]
     Route: 064
     Dates: start: 20140125, end: 20140716
  6. ADALAT [Concomitant]
     Active Substance: NIFEDIPINE
     Indication: HYPERTENSION
     Dosage: UNK [10 [MG/D ]
     Route: 064
  7. CELESTAN [Concomitant]
     Active Substance: BETAMETHASONE
     Indication: MATERNAL THERAPY TO ENHANCE FOETAL LUNG MATURITY
     Dosage: UNK
     Route: 064

REACTIONS (8)
  - Small for dates baby [Not Recovered/Not Resolved]
  - Atrial septal defect [Unknown]
  - Pulmonary hypertension [Fatal]
  - Congenital pulmonary valve atresia [Fatal]
  - Ventricular septal defect [Not Recovered/Not Resolved]
  - Patent ductus arteriosus [Not Recovered/Not Resolved]
  - Right ventricular failure [Fatal]
  - Foetal exposure during pregnancy [Unknown]

NARRATIVE: CASE EVENT DATE: 20140716
